FAERS Safety Report 6402773-5 (Version None)
Quarter: 2009Q4

REPORT INFORMATION
  Report Type: 
  Country: None (occurrence: None)
  Receive Date: 20091016
  Receipt Date: 20091005
  Transmission Date: 20100525
  Serious: Yes (Other)
  Sender: FDA-Public Use
  Company Number: JP-RANBAXY-2008RR-15817

PATIENT
  Age: 47 Year
  Sex: Male

DRUGS (1)
  1. MINOCYCLINE [Suspect]
     Indication: PUSTULAR PSORIASIS
     Dosage: 100 MG, QD

REACTIONS (1)
  - VASCULITIS [None]
